FAERS Safety Report 14256499 (Version 3)
Quarter: 2018Q4

REPORT INFORMATION
  Report Type: Spontaneous
  Country: US (occurrence: US)
  Receive Date: 20171206
  Receipt Date: 20181105
  Transmission Date: 20190204
  Serious: Yes (Other)
  Sender: FDA-Public Use
  Company Number: US-PFIZER INC-2017522029

PATIENT
  Age: 65 Year
  Sex: Female
  Weight: 136 kg

DRUGS (2)
  1. LYRICA [Suspect]
     Active Substance: PREGABALIN
     Dosage: UNK, TWICE A DAY (50-100MG)
  2. LYRICA [Suspect]
     Active Substance: PREGABALIN
     Indication: PAIN
     Dosage: 200 MG, 3X/DAY
     Route: 048

REACTIONS (6)
  - Autoimmune disorder [Unknown]
  - Restless legs syndrome [Unknown]
  - Stress [Unknown]
  - Disease recurrence [Unknown]
  - Intentional product use issue [Unknown]
  - Pain [Unknown]

NARRATIVE: CASE EVENT DATE: 201704
